FAERS Safety Report 7919197-1 (Version None)
Quarter: 2011Q4

REPORT INFORMATION
  Report Type: 
  Country: None (occurrence: None)
  Receive Date: 20111117
  Receipt Date: 20111109
  Transmission Date: 20120403
  Serious: Yes (Hospitalization)
  Sender: FDA-Public Use
  Company Number: US-BIOGENIDEC-2011BI043087

PATIENT
  Age: 58 Year
  Sex: Female

DRUGS (3)
  1. TYSABRI [Suspect]
     Indication: MULTIPLE SCLEROSIS
     Route: 042
     Dates: start: 20110923
  2. TYSABRI [Suspect]
     Route: 042
     Dates: start: 20081013, end: 20091223
  3. TYSABRI [Suspect]
     Route: 042
     Dates: start: 20100713, end: 20100713

REACTIONS (1)
  - SEPSIS [None]
